FAERS Safety Report 26125275 (Version 1)
Quarter: 2025Q4

REPORT INFORMATION
  Report Type: Spontaneous
  Country: US (occurrence: None)
  Receive Date: 20251204
  Receipt Date: 20251204
  Transmission Date: 20260118
  Serious: Yes (Hospitalization)
  Sender: FDA-CTU
  Company Number: None

PATIENT
  Sex: Male

DRUGS (7)
  1. REPATHA [Suspect]
     Active Substance: EVOLOCUMAB
     Indication: Product used for unknown indication
     Dosage: FREQUENCY : EVERY OTHER WEEK;?FREQ: INJECT 1 PEN UNDER THE SKIN (SUBCUTANEOUS INJECTION) EVERY 2 WEEKS?
     Route: 058
     Dates: start: 20191017
  2. ASPIRIN [Concomitant]
     Active Substance: ASPIRIN
  3. LOSARTAN POT TAB 25MG [Concomitant]
  4. METOPROL TAR TAB 25MG [Concomitant]
  5. NIACIN CAP 500MG [Concomitant]
  6. OMEPRAZOLE TAB 20MG [Concomitant]
  7. REPATHA [Concomitant]
     Active Substance: EVOLOCUMAB

REACTIONS (2)
  - Hospitalisation [None]
  - Intentional dose omission [None]
